FAERS Safety Report 6555766-1 (Version None)
Quarter: 2010Q1

REPORT INFORMATION
  Report Type: 
  Country: None (occurrence: None)
  Receive Date: 20100128
  Receipt Date: 20100125
  Transmission Date: 20100710
  Serious: Yes (Other)
  Sender: FDA-Public Use
  Company Number: GB-TEVA-221883ISR

PATIENT
  Age: 59 Year
  Sex: Female
  Weight: 69.09 kg

DRUGS (1)
  1. ALENDRONIC ACID [Suspect]
     Indication: OSTEOPOROSIS
     Route: 048
     Dates: start: 20091103, end: 20091125

REACTIONS (1)
  - MIGRAINE [None]
